FAERS Safety Report 6192306-3 (Version None)
Quarter: 2009Q2

REPORT INFORMATION
  Report Type: 
  Country: None (occurrence: None)
  Receive Date: 20090515
  Receipt Date: 20090511
  Transmission Date: 20091009
  Serious: Yes (Hospitalization)
  Sender: FDA-Public Use
  Company Number: FR-GENENTECH-235430

PATIENT
  Sex: Female
  Weight: 48 kg

DRUGS (10)
  1. FLUOROURACIL [Suspect]
     Indication: BREAST CANCER METASTATIC
     Dosage: 720 MG, Q3W
     Route: 042
     Dates: start: 20061221, end: 20070112
  2. BLINDED BEVACIZUMAB [Suspect]
     Indication: BREAST CANCER METASTATIC
     Dosage: 720 MG, Q3W
     Route: 042
     Dates: start: 20061221, end: 20070112
  3. BLINDED CAPECITABINE [Suspect]
     Indication: BREAST CANCER METASTATIC
     Dosage: 720 MG, Q3W
     Route: 042
     Dates: start: 20061221, end: 20070112
  4. CYCLOPHOSPHAMIDE [Suspect]
     Indication: BREAST CANCER METASTATIC
     Dosage: 720 MG, Q3W
     Route: 042
     Dates: start: 20061221, end: 20070112
  5. DOCETAXEL [Suspect]
     Indication: BREAST CANCER METASTATIC
     Dosage: 720 MG, Q3W
     Route: 042
     Dates: start: 20061221, end: 20070112
  6. DOXORUBICIN HCL [Suspect]
     Indication: BREAST CANCER METASTATIC
     Dosage: 720 MG, Q3W
     Route: 042
     Dates: start: 20061221, end: 20070112
  7. EPIRUBICIN [Suspect]
     Indication: BREAST CANCER METASTATIC
     Dosage: 720 MG, Q3W
     Route: 042
     Dates: start: 20061221, end: 20070112
  8. PACLITAXEL [Suspect]
     Indication: BREAST CANCER METASTATIC
     Dosage: 720 MG, Q3W
     Route: 042
     Dates: start: 20061221, end: 20070112
  9. BLINDED PLACEBO [Suspect]
     Indication: BREAST CANCER METASTATIC
     Dosage: 720 MG, Q3W
     Route: 042
     Dates: start: 20061221, end: 20070112
  10. TAXOTERE [Suspect]
     Indication: BREAST CANCER METASTATIC
     Dosage: 144 UNK, UNK
     Dates: start: 20061221, end: 20070112

REACTIONS (1)
  - NERVOUS SYSTEM DISORDER [None]
